FAERS Safety Report 10233772 (Version 1)
Quarter: 2014Q1

REPORT INFORMATION
  Report Type: Spontaneous
  Country: US (occurrence: None)
  Receive Date: 20140306
  Receipt Date: 20140306
  Transmission Date: 20141002
  Serious: Yes (Other)
  Sender: FDA-Public Use
  Company Number: 163-21880-13112233

PATIENT
  Age: 60 Year
  Sex: Male

DRUGS (5)
  1. REVLIMID (LENALIDOMIDE) (25 MILLIGRAM, CAPSULES) [Suspect]
     Indication: PLASMA CELL MYELOMA
     Route: 048
     Dates: start: 20110802
  2. ACYCLOVIR (ACICLOVIR) (ACICLOVIR) [Concomitant]
  3. FOLIC ACID (FOLIC ACID ) [Concomitant]
  4. MULTIPLE VITAMIN (MULTIPLE VITAMINS) [Concomitant]
  5. PREVACID (LANSOPRAZOLE) [Concomitant]

REACTIONS (1)
  - Rib fracture [None]
